FAERS Safety Report 9883600 (Version 1)
Quarter: 2014Q1

REPORT INFORMATION
  Report Type: Spontaneous
  Country: US (occurrence: US)
  Receive Date: 20140210
  Receipt Date: 20140210
  Transmission Date: 20141002
  Serious: Yes (Other)
  Sender: FDA-Public Use
  Company Number: US-BRISTOL-MYERS SQUIBB COMPANY-20117578

PATIENT
  Age: 63 Year
  Sex: Male
  Weight: 92.06 kg

DRUGS (6)
  1. BYDUREON [Suspect]
     Indication: TYPE 2 DIABETES MELLITUS
     Dates: start: 20140122
  2. JENTADUETO [Suspect]
     Dosage: 1DF = 2.5/1000MG.
     Route: 048
  3. CARVEDILOL [Concomitant]
     Route: 048
  4. CRESTOR [Concomitant]
     Route: 048
  5. FENOFIBRATE [Concomitant]
     Route: 048
  6. PANTOPRAZOLE [Concomitant]
     Route: 048

REACTIONS (5)
  - Hypotension [Not Recovered/Not Resolved]
  - Blood glucose increased [Not Recovered/Not Resolved]
  - Loss of consciousness [Unknown]
  - Dizziness [Not Recovered/Not Resolved]
  - Heart rate increased [Not Recovered/Not Resolved]
